FAERS Safety Report 10408127 (Version 3)
Quarter: 2015Q2

REPORT INFORMATION
  Report Type: Spontaneous
  Country: JP (occurrence: JP)
  Receive Date: 20140826
  Receipt Date: 20150626
  Transmission Date: 20150821
  Serious: Yes (Death)
  Sender: FDA-Public Use
  Company Number: JP-UCBSA-2014009825

PATIENT
  Age: 78 Year
  Sex: Male

DRUGS (3)
  1. DORIPENEM [Concomitant]
     Active Substance: DORIPENEM
  2. NEUPRO [Suspect]
     Active Substance: ROTIGOTINE
     Indication: PARKINSON^S DISEASE
     Dosage: 2 MG, ONCE DAILY (QD)
     Route: 062
     Dates: start: 20140807, end: 20140809
  3. LEVODOPA [Concomitant]
     Active Substance: LEVODOPA
     Dosage: 100 MG

REACTIONS (2)
  - Pneumonia [Fatal]
  - Tachycardia [Fatal]

NARRATIVE: CASE EVENT DATE: 201408
